FAERS Safety Report 6755760-1 (Version None)
Quarter: 2010Q2

REPORT INFORMATION
  Report Type: 
  Country: None (occurrence: None)
  Receive Date: 20100604
  Receipt Date: 20100525
  Transmission Date: 20101027
  Serious: Yes (Other)
  Sender: FDA-Public Use
  Company Number: FR-RB-010280-10

PATIENT
  Sex: Male

DRUGS (3)
  1. SUBUTEX [Suspect]
     Indication: DRUG THERAPY
     Route: 065
  2. ROHYPNOL [Concomitant]
     Indication: DRUG USE FOR UNKNOWN INDICATION
     Dosage: ABOUT 20 BOXES TAKEN IN THE LAST 30 DAYS
     Route: 065
  3. NEOCODION [Concomitant]
     Indication: DRUG USE FOR UNKNOWN INDICATION
     Dosage: 50 TO 80 BOXES IN LAST 30 DAYS
     Route: 065

REACTIONS (2)
  - SUBSTANCE ABUSE [None]
  - SUICIDAL IDEATION [None]
